FAERS Safety Report 6317919-7 (Version None)
Quarter: 2009Q3

REPORT INFORMATION
  Report Type: 
  Country: None (occurrence: None)
  Receive Date: 20090821
  Receipt Date: 20090819
  Transmission Date: 20100115
  Serious: Yes (Death)
  Sender: FDA-Public Use
  Company Number: CN-JNJFOC-20090806496

PATIENT
  Age: 72 Year
  Sex: Male

DRUGS (4)
  1. SPORANOX [Suspect]
     Route: 048
  2. SPORANOX [Suspect]
     Indication: ANTIFUNGAL PROPHYLAXIS
     Dosage: INITIALLY 10 ML PER DAY THEN INCREASED TO 15 ML PER DAY.
     Route: 048
  3. CYCLOSPORINE [Concomitant]
     Indication: APLASTIC ANAEMIA
     Route: 065
  4. HORMONE UNSPECIFIED [Concomitant]
     Route: 065

REACTIONS (2)
  - BLOOD BILIRUBIN INCREASED [None]
  - DEATH [None]
